FAERS Safety Report 6186202-5 (Version None)
Quarter: 2009Q2

REPORT INFORMATION
  Report Type: 
  Country: None (occurrence: None)
  Receive Date: 20090511
  Receipt Date: 20090506
  Transmission Date: 20091009
  Serious: Yes (Other)
  Sender: FDA-Public Use
  Company Number: US-PURDUE-USA_2009_0038133

PATIENT
  Sex: Male

DRUGS (1)
  1. OXYCODONE HYDROCHLORIDE [Suspect]
     Indication: PAIN
     Dosage: 80 MG, SEE TEXT

REACTIONS (5)
  - DYSPHAGIA [None]
  - PRURITUS [None]
  - SCAR [None]
  - THROAT TIGHTNESS [None]
  - URTICARIA [None]
